FAERS Safety Report 5477959-7 (Version None)
Quarter: 2007Q4

REPORT INFORMATION
  Report Type: 
  Country: None (occurrence: None)
  Receive Date: 20071005
  Receipt Date: 20070925
  Transmission Date: 20080405
  Serious: Yes (Other)
  Sender: FDA-Public Use
  Company Number: US-JNJFOC-20070905463

PATIENT
  Sex: Female
  Weight: 119.75 kg

DRUGS (7)
  1. DURAGESIC-100 [Suspect]
     Route: 062
  2. DURAGESIC-100 [Suspect]
     Indication: PAIN
     Route: 062
  3. FENTANYL TRANSDERMAL SYSTEM [Suspect]
     Indication: PAIN
     Route: 062
  4. FENTANYL TRANSDERMAL SYSTEM [Suspect]
     Indication: PAIN
     Route: 062
  5. LASIX [Concomitant]
     Indication: DIURETIC THERAPY
     Route: 048
  6. BUMEX [Concomitant]
     Indication: DIURETIC THERAPY
     Route: 048
  7. NARCO [Concomitant]
     Indication: BREAKTHROUGH PAIN
     Dosage: 10 MG/ 325 EVERY 3-4 HOURS AS NEEDED
     Route: 048

REACTIONS (6)
  - APPLICATION SITE ERYTHEMA [None]
  - APPLICATION SITE EXCORIATION [None]
  - INCORRECT DOSE ADMINISTERED [None]
  - PHARMACEUTICAL PRODUCT COMPLAINT [None]
  - RIGHT VENTRICULAR FAILURE [None]
  - WRONG TECHNIQUE IN DRUG USAGE PROCESS [None]
